FAERS Safety Report 6003958-2 (Version None)
Quarter: 2008Q4

REPORT INFORMATION
  Report Type: 
  Country: None (occurrence: None)
  Receive Date: 20081216
  Receipt Date: 20081205
  Transmission Date: 20090506
  Serious: Yes (Hospitalization)
  Sender: FDA-Public Use
  Company Number: US-ROCHE-601273

PATIENT
  Sex: Female
  Weight: 61 kg

DRUGS (9)
  1. INTERFERON ALFA-2A [Suspect]
     Indication: METASTATIC RENAL CELL CARCINOMA
     Route: 058
     Dates: start: 20041108, end: 20041112
  2. INTERFERON ALFA-2A [Suspect]
     Route: 058
     Dates: start: 20041115, end: 20041119
  3. INTERFERON ALFA-2A [Suspect]
     Route: 058
     Dates: start: 20041122, end: 20050425
  4. INTERFERON ALFA-2A [Suspect]
     Route: 058
     Dates: start: 20050427, end: 20050506
  5. PROTONIX [Concomitant]
     Dates: start: 20050118
  6. EFFEXOR [Concomitant]
  7. LORAZEPAM [Concomitant]
     Dates: start: 20041016
  8. FAMVIR [Concomitant]
     Route: 048
  9. OXYCONTIN [Concomitant]
     Route: 048

REACTIONS (4)
  - DEHYDRATION [None]
  - DRY MOUTH [None]
  - ORAL PAIN [None]
  - STOMATITIS [None]
